FAERS Safety Report 9218903 (Version 5)
Quarter: 2013Q2

REPORT INFORMATION
  Report Type: Spontaneous
  Country: GB (occurrence: GB)
  Receive Date: 20130409
  Receipt Date: 20130530
  Transmission Date: 20140414
  Serious: Yes (Other)
  Sender: FDA-Public Use
  Company Number: GB-JNJFOC-20130403070

PATIENT
  Sex: Male
  Weight: 70 kg

DRUGS (3)
  1. STELARA [Suspect]
     Indication: PSORIASIS
     Route: 058
     Dates: start: 201303
  2. PAROXETINE [Concomitant]
     Indication: DEPRESSION
     Route: 065
     Dates: start: 20091201
  3. DICLOFENAC [Concomitant]
     Indication: ARTHRITIS
     Route: 065
     Dates: start: 20091201

REACTIONS (5)
  - Condition aggravated [Recovered/Resolved]
  - Oedema peripheral [Recovering/Resolving]
  - Erythema [Recovering/Resolving]
  - Skin exfoliation [Recovering/Resolving]
  - Drug ineffective [Recovered/Resolved]
